FAERS Safety Report 19871971 (Version 1)
Quarter: 2021Q3

REPORT INFORMATION
  Report Type: Spontaneous
  Country: US (occurrence: US)
  Receive Date: 20210922
  Receipt Date: 20210922
  Transmission Date: 20211014
  Serious: Yes (Hospitalization)
  Sender: FDA-Public Use
  Company Number: None

PATIENT
  Age: 65 Year
  Sex: Male

DRUGS (5)
  1. OPSUMIT TAB 10MG [Concomitant]
  2. ORENITRAM TAB 0.125MG [Concomitant]
  3. TURMERIC CAP 500MG [Concomitant]
  4. VITAMIN D3 CAP 5000UNIT [Concomitant]
  5. SILDENAFIL 20 MG TAB [Suspect]
     Active Substance: SILDENAFIL
     Indication: PULMONARY HYPERTENSION
     Dosage: TAKE 3 TABLETS BY MOUTH THREE TIMES DAILY
     Route: 048
     Dates: start: 20200922

REACTIONS (1)
  - Therapy interrupted [None]

NARRATIVE: CASE EVENT DATE: 202107
